FAERS Safety Report 8078553-4 (Version None)
Quarter: 2012Q1

REPORT INFORMATION
  Report Type: 
  Country: None (occurrence: None)
  Receive Date: 20120127
  Receipt Date: 20110103
  Transmission Date: 20120608
  Serious: No
  Sender: FDA-Public Use
  Company Number: US-ABBOTT-11P-163-0694973-00

PATIENT
  Age: 58 Year
  Sex: Female

DRUGS (5)
  1. SINGULAIR [Concomitant]
     Indication: SINUS DISORDER
  2. FOLIC ACID [Concomitant]
     Indication: PRODUCT USED FOR UNKNOWN INDICATION
  3. HUMIRA [Suspect]
     Indication: RHEUMATOID ARTHRITIS
     Dates: start: 20100701
  4. METHOTREXATE [Concomitant]
     Indication: PRODUCT USED FOR UNKNOWN INDICATION
     Dosage: 8 PILLS WEEKLY ON THURSDAYS
  5. NAPROXEN (ALEVE) [Concomitant]
     Indication: PAIN

REACTIONS (2)
  - WEIGHT INCREASED [None]
  - VISION BLURRED [None]
